FAERS Safety Report 5931044-6 (Version None)
Quarter: 2008Q4

REPORT INFORMATION
  Report Type: 
  Country: None (occurrence: None)
  Receive Date: 20081022
  Receipt Date: 20081006
  Transmission Date: 20090506
  Serious: Yes (Death)
  Sender: FDA-Public Use
  Company Number: 2008S1018034

PATIENT
  Sex: Male

DRUGS (3)
  1. BLEOMYCIN SULFATE [Suspect]
     Dosage: 30 MG; INTRAVENOUS
     Route: 042
  2. ETOPOSIDE [Suspect]
     Dosage: 100 MG/M**2; INTRAVENOUS
     Route: 042
  3. CISPLATIN [Suspect]
     Dosage: 20 MG/M**2; INTRAVENOUS
     Route: 042

REACTIONS (14)
  - ABNORMAL BEHAVIOUR [None]
  - ASTHENIA [None]
  - CHLOROMA [None]
  - COMA [None]
  - CONFUSIONAL STATE [None]
  - DEPRESSED LEVEL OF CONSCIOUSNESS [None]
  - DISEASE PROGRESSION [None]
  - DISORIENTATION [None]
  - HAEMORRHAGE [None]
  - HEADACHE [None]
  - HEMIPLEGIA [None]
  - HYPERSOMNIA-BULIMIA SYNDROME [None]
  - PYREXIA [None]
  - VASCULITIS [None]
